FAERS Safety Report 22332831 (Version 1)
Quarter: 2023Q2

REPORT INFORMATION
  Report Type: Spontaneous
  Country: None (occurrence: US)
  Receive Date: 20230517
  Receipt Date: 20230517
  Transmission Date: 20230721
  Serious: No
  Sender: FDA-Public Use
  Company Number: US-Mission Pharmacal Company-2141588

PATIENT
  Age: 33 Year
  Sex: Female

DRUGS (3)
  1. THIOLA EC [Suspect]
     Active Substance: TIOPRONIN
     Indication: Ureterolithiasis
     Route: 048
     Dates: start: 20211116
  2. BUSPIRONE [Concomitant]
     Active Substance: BUSPIRONE HYDROCHLORIDE
  3. DAYSEE [Concomitant]
     Active Substance: ETHINYL ESTRADIOL\LEVONORGESTREL

REACTIONS (1)
  - Drug ineffective [Unknown]
